FAERS Safety Report 11149088 (Version 1)
Quarter: 2015Q2

REPORT INFORMATION
  Report Type: Other
  Country: GB (occurrence: GB)
  Receive Date: 20150529
  Receipt Date: 20150529
  Transmission Date: 20150821
  Serious: Yes (Hospitalization, Other)
  Sender: FDA-Public Use
  Company Number: GB-MYLANLABS-2015M1016162

PATIENT

DRUGS (4)
  1. AMLODIPINE BESILATE [Concomitant]
     Active Substance: AMLODIPINE BESYLATE
     Indication: HYPERTENSION
     Dosage: 10 MG, UNK
     Route: 048
     Dates: start: 2010
  2. MAGNESIUM OXIDE. [Concomitant]
     Active Substance: MAGNESIUM OXIDE
     Dosage: UNK
  3. ECHINACEA [Concomitant]
     Active Substance: ECHINACEA, UNSPECIFIED
     Dosage: UNK
  4. LISINOPRIL. [Suspect]
     Active Substance: LISINOPRIL
     Indication: HYPERTENSION
     Dosage: 20 MG, UNK
     Route: 048
     Dates: start: 201001, end: 20150504

REACTIONS (5)
  - Lip swelling [Not Recovered/Not Resolved]
  - Mouth swelling [Not Recovered/Not Resolved]
  - Product substitution issue [Unknown]
  - Angioedema [Not Recovered/Not Resolved]
  - Swollen tongue [Not Recovered/Not Resolved]

NARRATIVE: CASE EVENT DATE: 20150120
